FAERS Safety Report 9571830 (Version 3)
Quarter: 2013Q4

REPORT INFORMATION
  Report Type: Spontaneous
  Country: US (occurrence: US)
  Receive Date: 20131001
  Receipt Date: 20131115
  Transmission Date: 20140711
  Serious: No
  Sender: FDA-Public Use
  Company Number: US-BIOGENIDEC-2013BI066954

PATIENT
  Sex: Male

DRUGS (6)
  1. TECFIDERA [Suspect]
     Indication: MULTIPLE SCLEROSIS
     Route: 048
     Dates: start: 20130606
  2. FLEXERIL [Concomitant]
  3. PROVIGIL [Concomitant]
  4. GLUCOSAMINE CHONDROITIN [Concomitant]
  5. MSM [Concomitant]
  6. AVONEX [Concomitant]
     Indication: MULTIPLE SCLEROSIS
     Route: 030
     Dates: start: 20110525, end: 20130606

REACTIONS (1)
  - Flushing [Unknown]
